FAERS Safety Report 20958577 (Version 1)
Quarter: 2022Q2

REPORT INFORMATION
  Report Type: Spontaneous
  Country: IN (occurrence: IN)
  Receive Date: 20220614
  Receipt Date: 20220614
  Transmission Date: 20220721
  Serious: Yes (Hospitalization)
  Sender: FDA-Public Use
  Company Number: IN-TORRENT-00003084

PATIENT
  Age: 36 Year
  Sex: Male

DRUGS (10)
  1. ESOMEPRAZOLE [Suspect]
     Active Substance: ESOMEPRAZOLE
     Indication: Antacid therapy
     Dosage: 40 MG BD
     Route: 042
     Dates: start: 20220529
  2. DNS/RL [Concomitant]
     Indication: Product used for unknown indication
     Dosage: PLUS MULTI VITAMIN CONCENTRATE (MVI) IV AT 60 ML/HOUR
     Route: 042
     Dates: start: 20220529
  3. ONDANSETRON HYDROCHLORIDE [Concomitant]
     Active Substance: ONDANSETRON HYDROCHLORIDE
     Indication: Antacid therapy
     Dosage: 8 MG IV TDS (THRICE A DAY)
     Route: 042
     Dates: start: 20220529
  4. Contramol [Concomitant]
     Indication: Analgesic therapy
     Dosage: 100 MG IV SOS
     Route: 042
     Dates: start: 20220529
  5. MIRTAZAPINE [Concomitant]
     Active Substance: MIRTAZAPINE
     Indication: Product used for unknown indication
     Dosage: 7.5 MG BD (TWICE A DAY)
     Dates: start: 20220529
  6. NEXITO PLUS [Concomitant]
     Indication: Product used for unknown indication
     Dosage: HS (AT NIGHT)
     Dates: start: 20220529
  7. Lactimor [Concomitant]
     Indication: Constipation
     Dosage: 1 TEASPOONFUL (TSF) WITH 300 ML WATER HS (AT NIGHT)
     Dates: start: 20220529
  8. CLONOTRIL PLUS [Concomitant]
     Indication: Product used for unknown indication
     Dosage: HALF DOSE
     Dates: start: 20220529
  9. LESURIDE [Concomitant]
     Indication: Antacid therapy
     Dosage: 25 MG TDS
     Route: 042
     Dates: start: 20220529
  10. Digeraft [Concomitant]
     Indication: Product used for unknown indication
     Dosage: 1 TSF 1-1-1
     Dates: start: 20220529

REACTIONS (1)
  - Hypoglycaemia [Unknown]

NARRATIVE: CASE EVENT DATE: 20220530
